FAERS Safety Report 6582192-1 (Version None)
Quarter: 2010Q1

REPORT INFORMATION
  Report Type: 
  Country: None (occurrence: None)
  Receive Date: 20100212
  Receipt Date: 20100212
  Transmission Date: 20100710
  Serious: Yes (Hospitalization)
  Sender: FDA-Public Use
  Company Number: None

PATIENT
  Sex: Male
  Weight: 76 kg

DRUGS (2)
  1. CARABOPLATIN [Suspect]
     Dosage: 750 MG
     Dates: end: 20100129
  2. ETOPOSIDE [Suspect]
     Dosage: 600 MG
     Dates: end: 20100131

REACTIONS (4)
  - DEHYDRATION [None]
  - ORTHOSTATIC HYPOTENSION [None]
  - PERIPHERAL SENSORY NEUROPATHY [None]
  - SYNCOPE [None]
